FAERS Safety Report 6339793-5 (Version None)
Quarter: 2009Q3

REPORT INFORMATION
  Report Type: 
  Country: None (occurrence: None)
  Receive Date: 20090903
  Receipt Date: 20090828
  Transmission Date: 20100115
  Serious: Yes (Hospitalization, Other)
  Sender: FDA-Public Use
  Company Number: US-GENENTECH-289476

PATIENT
  Age: 19 Year
  Sex: Male

DRUGS (4)
  1. BEVACIZUMAB [Suspect]
     Indication: EWING'S SARCOMA
     Dosage: 15 MG/KG, Q21D
     Route: 042
     Dates: start: 20080701, end: 20090622
  2. VINCRISTINE [Concomitant]
     Indication: EWING'S SARCOMA
     Dosage: 1.5 MG/M2, UNK
     Route: 042
     Dates: start: 20080701, end: 20090706
  3. TOPOTECAN [Concomitant]
     Indication: EWING'S SARCOMA
     Dosage: 0.75 MG/M2, UNK
     Route: 042
     Dates: start: 20080701, end: 20090626
  4. CYCLOPHOSPHAMIDE [Concomitant]
     Indication: EWING'S SARCOMA
     Dosage: 250 MG/M2, UNK
     Route: 042
     Dates: start: 20080701, end: 20090626

REACTIONS (3)
  - DYSPHAGIA [None]
  - HAEMATEMESIS [None]
  - OESOPHAGEAL STENOSIS [None]
